FAERS Safety Report 14966398 (Version 1)
Quarter: 2018Q2

REPORT INFORMATION
  Report Type: Report from Study
  Country: None (occurrence: BR)
  Receive Date: 20180604
  Receipt Date: 20180604
  Transmission Date: 20180711
  Serious: Yes (Hospitalization)
  Sender: FDA-Public Use
  Company Number: BR-ABBVIE-18K-020-2372419-00

PATIENT
  Age: 71 Year
  Sex: Male
  Weight: 69 kg

DRUGS (5)
  1. CALVIN [Concomitant]
     Indication: PRODUCT USED FOR UNKNOWN INDICATION
  2. VALERIMED [Concomitant]
     Indication: RHEUMATOID ARTHRITIS
  3. BRASART HCT [Concomitant]
     Active Substance: HYDROCHLOROTHIAZIDE\VALSARTAN
     Indication: HYPERTENSION
     Dosage: VALSARTAN 160 MG??HYDROCHLOROTHIAZIDE 25 MG
  4. HUMIRA [Suspect]
     Active Substance: ADALIMUMAB
     Indication: RHEUMATOID ARTHRITIS
     Route: 058
     Dates: start: 20180201
  5. MEMANTINE HYDROCHLORIDE. [Concomitant]
     Active Substance: MEMANTINE HYDROCHLORIDE
     Indication: DEMENTIA ALZHEIMER^S TYPE

REACTIONS (4)
  - Hypertension [Recovered/Resolved]
  - Influenza [Unknown]
  - Dyspnoea [Recovered/Resolved]
  - Depression [Recovered/Resolved]

NARRATIVE: CASE EVENT DATE: 20180515
